FAERS Safety Report 5926760-6 (Version None)
Quarter: 2008Q4

REPORT INFORMATION
  Report Type: 
  Country: None (occurrence: None)
  Receive Date: 20081022
  Receipt Date: 20081013
  Transmission Date: 20090506
  Serious: Yes (Hospitalization, Other)
  Sender: FDA-Public Use
  Company Number: BE-ABBOTT-08P-013-0481793-00

PATIENT

DRUGS (2)
  1. HUMIRA [Suspect]
     Indication: DRUG USE FOR UNKNOWN INDICATION
     Dates: start: 20041201, end: 20080401
  2. HUMIRA [Suspect]
     Dates: start: 20080510

REACTIONS (1)
  - INTERVERTEBRAL DISC SPACE NARROWING [None]
